FAERS Safety Report 11210745 (Version 1)
Quarter: 2015Q2

REPORT INFORMATION
  Report Type: Spontaneous
  Country: US (occurrence: US)
  Receive Date: 20150622
  Receipt Date: 20150622
  Transmission Date: 20150821
  Serious: No
  Sender: FDA-Public Use
  Company Number: US-TAKEDA-2014TUS003790

PATIENT

DRUGS (4)
  1. DIPEPTIDYL PEPTIDASE 4 (DPP-4) INHIBITORS ( ) [Interacting]
     Active Substance: UNSPECIFIED INGREDIENT
  2. OSENI [Suspect]
     Active Substance: ALOGLIPTIN BENZOATE\PIOGLITAZONE HYDROCHLORIDE
  3. METFORMIN [Interacting]
     Active Substance: METFORMIN HYDROCHLORIDE
  4. PIOGLITAZONE [Interacting]
     Active Substance: PIOGLITAZONE

REACTIONS (2)
  - Blood glucose increased [Unknown]
  - Drug interaction [Unknown]
